FAERS Safety Report 9342303 (Version 1)
Quarter: 2013Q2

REPORT INFORMATION
  Report Type: Spontaneous
  Country: IT (occurrence: IT)
  Receive Date: 20130611
  Receipt Date: 20130611
  Transmission Date: 20140414
  Serious: Yes (Hospitalization)
  Sender: FDA-Public Use
  Company Number: IT-ASTRAZENECA-2013SE40246

PATIENT
  Age: 33240 Day
  Sex: Female

DRUGS (9)
  1. SEROQUEL [Suspect]
     Indication: HALLUCINATION
     Route: 048
     Dates: start: 20130419, end: 20130419
  2. MIRTAZAPINE [Suspect]
     Indication: HALLUCINATION
     Route: 048
     Dates: start: 20130419, end: 20130419
  3. SERENASE [Suspect]
     Indication: HALLUCINATION
     Route: 048
     Dates: start: 20130419, end: 20130419
  4. TRIATEC HCT [Concomitant]
     Dosage: 2.5 MG/12.5 MG
     Route: 048
  5. INDERAL [Concomitant]
     Route: 048
  6. MADOPAR [Concomitant]
     Route: 048
  7. MIRAPEXIN [Concomitant]
     Route: 048
  8. CONTRAMAL [Concomitant]
     Dosage: 100 MG/ML, ORAL DROPS, SOLUTION, 12 GTT, UNKNOWN
     Route: 048
  9. LYRICA [Concomitant]
     Route: 048

REACTIONS (2)
  - Diarrhoea [Unknown]
  - Sopor [Unknown]
